FAERS Safety Report 18468893 (Version 1)
Quarter: 2020Q4

REPORT INFORMATION
  Report Type: Spontaneous
  Country: CH (occurrence: CH)
  Receive Date: 20201105
  Receipt Date: 20201105
  Transmission Date: 20210114
  Serious: Yes (Disabling)
  Sender: FDA-Public Use
  Company Number: NVSC2020CH292515

PATIENT

DRUGS (1)
  1. ANASTRAZOLE SANDOZ [Suspect]
     Active Substance: ANASTROZOLE
     Indication: BREAST CANCER
     Dosage: UNK
     Route: 065

REACTIONS (5)
  - Fatigue [Unknown]
  - Abscess limb [Unknown]
  - Lymphocele [Unknown]
  - Pain [Unknown]
  - Weight increased [Unknown]
